FAERS Safety Report 6811328-X (Version None)
Quarter: 2010Q2

REPORT INFORMATION
  Report Type: 
  Country: None (occurrence: None)
  Receive Date: 20100630
  Receipt Date: 20100624
  Transmission Date: 20101027
  Serious: Yes (Hospitalization)
  Sender: FDA-Public Use
  Company Number: FR-MERCK-1006FRA00093

PATIENT
  Age: 55 Year
  Sex: Male

DRUGS (5)
  1. HYZAAR [Suspect]
     Indication: HYPERTENSION
     Route: 048
     Dates: end: 20090731
  2. CARBAMAZEPINE [Suspect]
     Route: 048
     Dates: end: 20090731
  3. LEVOMEPROMAZINE [Concomitant]
     Route: 048
  4. TRIHEXYPHENIDYL HYDROCHLORIDE [Concomitant]
     Route: 048
  5. PERICIAZINE [Concomitant]
     Route: 048

REACTIONS (4)
  - BALANCE DISORDER [None]
  - DRUG INTERACTION [None]
  - HYPONATRAEMIA [None]
  - NYSTAGMUS [None]
